FAERS Safety Report 9894783 (Version 2)
Quarter: 2015Q2

REPORT INFORMATION
  Report Type: Spontaneous
  Country: MX (occurrence: MX)
  Receive Date: 20140213
  Receipt Date: 20150402
  Transmission Date: 20150821
  Serious: No
  Sender: FDA-Public Use
  Company Number: MX-SA-2014SA012633

PATIENT
  Age: 28 Year
  Sex: Female
  Weight: 54 kg

DRUGS (5)
  1. ARAVA [Suspect]
     Active Substance: LEFLUNOMIDE
     Indication: RHEUMATOID ARTHRITIS
     Dosage: MAINTENANCE DOSE
     Route: 048
     Dates: start: 2012, end: 20140120
  2. ARAVA [Suspect]
     Active Substance: LEFLUNOMIDE
     Indication: RHEUMATOID ARTHRITIS
     Dosage: LOAD DOSE
     Route: 048
     Dates: start: 2012
  3. PREDNISONE. [Suspect]
     Active Substance: PREDNISONE
     Indication: RHEUMATOID ARTHRITIS
     Route: 048
     Dates: start: 2012, end: 20140120
  4. COLESTYRAMINE [Concomitant]
     Active Substance: CHOLESTYRAMINE
     Dosage: 4G
     Dates: end: 20140127
  5. COLESTYRAMINE [Concomitant]
     Active Substance: CHOLESTYRAMINE
     Dates: start: 20140127

REACTIONS (1)
  - Exposure during pregnancy [Unknown]

NARRATIVE: CASE EVENT DATE: 201312
